FAERS Safety Report 16380821 (Version 1)
Quarter: 2019Q2

REPORT INFORMATION
  Report Type: Spontaneous
  Country: GB (occurrence: GB)
  Receive Date: 20190602
  Receipt Date: 20190602
  Transmission Date: 20190711
  Serious: Yes (Other)
  Sender: FDA-Public Use
  Company Number: GB-009507513-1905GBR011271

PATIENT
  Sex: Male

DRUGS (2)
  1. ISENTRESS [Suspect]
     Active Substance: RALTEGRAVIR POTASSIUM
     Indication: VIRAL INFECTION
     Route: 048
  2. VITAMINS (UNSPECIFIED) [Suspect]
     Active Substance: VITAMINS

REACTIONS (1)
  - Pathogen resistance [Unknown]
